FAERS Safety Report 4265918-1 (Version None)
Quarter: 2004Q1

REPORT INFORMATION
  Report Type: 
  Country: None (occurrence: None)
  Receive Date: 20040106
  Receipt Date: 20031226
  Transmission Date: 20041129
  Serious: Yes (Hospitalization)
  Sender: FDA-Public Use
  Company Number: JP-JNJFOC-20031204883

PATIENT
  Age: 51 Year
  Sex: Male
  Weight: 47.5 kg

DRUGS (15)
  1. REMICADE [Suspect]
     Indication: CROHN'S DISEASE
     Dosage: 5 MG/KG, 1 IN 1 AS NECESSARY, INTRAVENOUS DRIP
     Route: 041
     Dates: start: 20021212, end: 20021212
  2. ENSURE LIQUID [Concomitant]
  3. BIOFERMIN [Concomitant]
  4. LAC B LACTOBACILLUS BIFIDUS, LYOPHILIZED) [Concomitant]
  5. PENTASA [Concomitant]
  6. ELENTAL [Concomitant]
  7. CEFOTIAM HYDROCHLORIDE [Concomitant]
  8. HYOSCINE HBR HYT [Concomitant]
  9. AMIKACIN [Concomitant]
  10. TIENAM [Concomitant]
  11. MEROPEN (MEROPENEM) [Concomitant]
  12. CEFMETAZON (CEFMETAZOLE SODIUM) [Concomitant]
  13. GENTACIN (GENTAMICIN SULFATE) OINTMENT [Concomitant]
  14. METHYCOBAL (MECOBALAMIN) [Concomitant]
  15. JUVELA (NICOTINATE) (TOCOPHERYL NICOTINATE) [Concomitant]

REACTIONS (5)
  - ABSCESS [None]
  - CONDITION AGGRAVATED [None]
  - DRUG INEFFECTIVE [None]
  - FISTULA [None]
  - PYREXIA [None]
